FAERS Safety Report 12526520 (Version 4)
Quarter: 2016Q3

REPORT INFORMATION
  Report Type: Report from Study
  Country: CA (occurrence: CA)
  Receive Date: 20160705
  Receipt Date: 20160923
  Transmission Date: 20161109
  Serious: Yes (Other)
  Sender: FDA-Public Use
  Company Number: PHHY2015CA168804

PATIENT
  Age: 58 Year
  Sex: Female

DRUGS (5)
  1. SANDOSTATIN LAR DEPOT [Suspect]
     Active Substance: OCTREOTIDE ACETATE
     Indication: CARCINOID TUMOUR
     Dosage: 20 MG, QMO (EVERY 4 WEEKS)
     Route: 030
     Dates: start: 20151218
  2. SANDOSTATIN [Suspect]
     Active Substance: OCTREOTIDE ACETATE
     Indication: CARCINOID TUMOUR
     Dosage: UNK UNK, BID
     Route: 058
     Dates: start: 20151205, end: 20151218
  3. PANTOPRAZOLE [Concomitant]
     Active Substance: PANTOPRAZOLE SODIUM
     Indication: PRODUCT USED FOR UNKNOWN INDICATION
     Route: 065
  4. KOMBIGLYZE XR [Concomitant]
     Active Substance: METFORMIN HYDROCHLORIDE\SAXAGLIPTIN HYDROCHLORIDE
     Indication: PRODUCT USED FOR UNKNOWN INDICATION
     Dosage: 2.5 MG, BID
     Route: 065
     Dates: start: 20160610
  5. APO-GLICLAZIDE [Concomitant]
     Active Substance: GLICLAZIDE
     Indication: PRODUCT USED FOR UNKNOWN INDICATION
     Route: 065
     Dates: start: 20160610

REACTIONS (27)
  - Blood pressure increased [Unknown]
  - Frequent bowel movements [Unknown]
  - Abdominal distension [Unknown]
  - Muscular weakness [Unknown]
  - Nervousness [Unknown]
  - Steatorrhoea [Unknown]
  - Blood pressure systolic increased [Unknown]
  - Flushing [Unknown]
  - Headache [Recovering/Resolving]
  - Faeces discoloured [Unknown]
  - Muscle spasms [Unknown]
  - Psoriasis [Unknown]
  - Body temperature decreased [Unknown]
  - Hyperglycaemia [Unknown]
  - Fatigue [Unknown]
  - Dry mouth [Unknown]
  - Diarrhoea [Unknown]
  - Hepatic lesion [Unknown]
  - Hot flush [Unknown]
  - Influenza like illness [Unknown]
  - Back pain [Unknown]
  - Dry skin [Unknown]
  - Abdominal pain [Unknown]
  - Constipation [Unknown]
  - Dizziness [Unknown]
  - Somnolence [Unknown]
  - Flatulence [Unknown]

NARRATIVE: CASE EVENT DATE: 20151205
